FAERS Safety Report 4484017-7 (Version None)
Quarter: 2004Q4

REPORT INFORMATION
  Report Type: 
  Country: None (occurrence: None)
  Receive Date: 20041020
  Receipt Date: 20041006
  Transmission Date: 20050328
  Serious: Yes (Hospitalization, Other)
  Sender: FDA-Public Use
  Company Number: USA041080337

PATIENT
  Age: 58 Year
  Sex: Male

DRUGS (4)
  1. HUMULIN R [Suspect]
  2. HUMULIN N [Suspect]
  3. HUMALOG [Suspect]
  4. GLUCOPHAGE [Concomitant]

REACTIONS (4)
  - DIABETES MELLITUS INADEQUATE CONTROL [None]
  - DIZZINESS [None]
  - FOOT AMPUTATION [None]
  - GLYCOSYLATED HAEMOGLOBIN INCREASED [None]
